FAERS Safety Report 10008948 (Version 1)
Quarter: 2014Q1

REPORT INFORMATION
  Report Type: Spontaneous
  Country: US (occurrence: US)
  Receive Date: 20140313
  Receipt Date: 20140313
  Transmission Date: 20141002
  Serious: Yes (Other)
  Sender: FDA-Public Use
  Company Number: US-INCYTE CORPORATION-2012IN001142

PATIENT
  Age: 75 Year
  Sex: Female

DRUGS (9)
  1. JAKAFI [Suspect]
     Indication: MYELOFIBROSIS
     Dosage: 20 MG, BID
     Route: 048
     Dates: start: 20120215
  2. ALTACE [Concomitant]
  3. COREG [Concomitant]
  4. ECOTRIN [Concomitant]
  5. ZANTAC [Concomitant]
  6. ZOCOR [Concomitant]
  7. LEVOXYL [Concomitant]
  8. TAMOXIFEN [Concomitant]
  9. PREDNISONE [Concomitant]

REACTIONS (2)
  - Haemoglobin decreased [Recovered/Resolved]
  - Dizziness [Unknown]
